FAERS Safety Report 10653679 (Version 2)
Quarter: 2015Q4

REPORT INFORMATION
  Report Type: Spontaneous
  Country: US (occurrence: US)
  Receive Date: 20141216
  Receipt Date: 20151105
  Transmission Date: 20160304
  Serious: Yes (Hospitalization, Other)
  Sender: FDA-Public Use
  Company Number: US-AUROBINDO-AUR-APL-2014-12960

PATIENT
  Age: 36 Year
  Sex: Male

DRUGS (1)
  1. LAMOTRIGINE TABLETS 150 MG [Suspect]
     Active Substance: LAMOTRIGINE
     Indication: BIPOLAR DISORDER
     Dosage: 90 TABLETS OF 150MG
     Route: 065

REACTIONS (18)
  - Electrocardiogram QT prolonged [Recovered/Resolved]
  - Intentional overdose [Recovered/Resolved]
  - Bundle branch block right [Recovered/Resolved]
  - Neurotoxicity [Unknown]
  - Respiratory rate decreased [Recovered/Resolved]
  - Muscle spasticity [Recovered/Resolved]
  - Drug level increased [Recovered/Resolved]
  - Cardiotoxicity [Recovered/Resolved]
  - Electrocardiogram QRS complex prolonged [Recovered/Resolved]
  - Myopathy [Unknown]
  - Generalised tonic-clonic seizure [Recovered/Resolved]
  - Dyskinesia [Recovered/Resolved]
  - Mental status changes [Not Recovered/Not Resolved]
  - Status epilepticus [Recovered/Resolved]
  - Suicide attempt [Recovered/Resolved]
  - Blood pressure increased [Recovered/Resolved]
  - Quadriplegia [Unknown]
  - Sinus tachycardia [Recovered/Resolved]
